FAERS Safety Report 8077051-1 (Version None)
Quarter: 2012Q1

REPORT INFORMATION
  Report Type: 
  Country: None (occurrence: None)
  Receive Date: 20120127
  Receipt Date: 20120117
  Transmission Date: 20120608
  Serious: Yes (Hospitalization)
  Sender: FDA-Public Use
  Company Number: US-UCBSA-048533

PATIENT
  Age: 30 Year
  Sex: Female
  Weight: 97.07 kg

DRUGS (5)
  1. GEMFIBROZIL [Concomitant]
  2. LANTUS [Concomitant]
     Dosage: 100 UNITS/ML; 40 U; ONCE AT MORNING AND ONCE AT BED TIME
     Route: 058
  3. HUMALOG [Concomitant]
     Dosage: 100 UNITS/ML, 15 U BEFORE MEALS
     Route: 058
  4. CIMZIA [Suspect]
     Indication: CROHN'S DISEASE
     Route: 058
     Dates: start: 20101223
  5. ORAL CONTRACEPTIVES [Concomitant]
     Route: 048

REACTIONS (1)
  - PANCREATITIS [None]
